FAERS Safety Report 5593136-3 (Version None)
Quarter: 2008Q1

REPORT INFORMATION
  Report Type: 
  Country: None (occurrence: None)
  Receive Date: 20080116
  Receipt Date: 20080107
  Transmission Date: 20080703
  Serious: Yes (Other)
  Sender: FDA-Public Use
  Company Number: US-TYCO HEALTHCARE/MALLINCKRODT-T200800009

PATIENT

DRUGS (4)
  1. METHADONE HCL [Suspect]
     Indication: PAIN
     Dosage: 3 TABS Q8-12 HRS
     Route: 048
     Dates: start: 20060901
  2. PHENERGAN                          /00033001/ [Concomitant]
     Indication: NAUSEA
  3. PHENERGAN                          /00033001/ [Concomitant]
     Indication: VOMITING
  4. ACIPHEX [Concomitant]

REACTIONS (1)
  - ANAPHYLACTIC REACTION [None]
